FAERS Safety Report 7292554-5 (Version None)
Quarter: 2011Q1

REPORT INFORMATION
  Report Type: 
  Country: None (occurrence: None)
  Receive Date: 20110215
  Receipt Date: 20110207
  Transmission Date: 20110831
  Serious: Yes (Congenital Anomaly, Other)
  Sender: FDA-Public Use
  Company Number: LT-BAYER-2011-012628

PATIENT

DRUGS (4)
  1. CLEXANE [Concomitant]
     Route: 064
  2. ASPIRIN [Suspect]
     Indication: DRUG EXPOSURE DURING PREGNANCY
     Dosage: 100 MG, HS
     Route: 064
     Dates: start: 20090401, end: 20091201
  3. ASPIRIN [Suspect]
     Dosage: 100 MG, HS
     Route: 064
     Dates: start: 20090401, end: 20091201
  4. CLEXANE [Concomitant]
     Route: 064

REACTIONS (1)
  - GASTROSCHISIS [None]
